FAERS Safety Report 7414266-7 (Version None)
Quarter: 2011Q2

REPORT INFORMATION
  Report Type: 
  Country: None (occurrence: None)
  Receive Date: 20110414
  Receipt Date: 20110330
  Transmission Date: 20111010
  Serious: Yes (Hospitalization)
  Sender: FDA-Public Use
  Company Number: US-CELGENEUS-163-20785-11040071

PATIENT
  Sex: Male
  Weight: 106 kg

DRUGS (1)
  1. THALOMID [Suspect]
     Dosage: 200 MILLIGRAM
     Route: 048
     Dates: start: 20100423

REACTIONS (1)
  - BENIGN PROSTATIC HYPERPLASIA [None]
